FAERS Safety Report 6578108-4 (Version None)
Quarter: 2010Q1

REPORT INFORMATION
  Report Type: 
  Country: None (occurrence: None)
  Receive Date: 20100211
  Receipt Date: 20100205
  Transmission Date: 20100710
  Serious: Yes (Death, Hospitalization)
  Sender: FDA-Public Use
  Company Number: DE-B.I. PHARMACEUTICALS,INC./RIDGEFIELD-2009-DE-03066DE

PATIENT
  Sex: Male
  Weight: 67 kg

DRUGS (5)
  1. BI 6727 [Suspect]
     Indication: ACUTE MYELOID LEUKAEMIA
     Dosage: 150 MG
     Dates: start: 20090408, end: 20090408
  2. CIPRO [Concomitant]
     Indication: ANTIBIOTIC THERAPY
     Dosage: 1000 MG
     Route: 048
  3. ZOP [Concomitant]
     Indication: SLEEP DISORDER
     Route: 048
  4. TAVOR [Concomitant]
     Indication: ANXIETY
     Dosage: AS NEEDED
     Route: 048
  5. TAVOR [Concomitant]
     Indication: TENSION

REACTIONS (3)
  - PNEUMONIA [None]
  - PNEUMONIA FUNGAL [None]
  - PYREXIA [None]
